FAERS Safety Report 6706399-5 (Version None)
Quarter: 2010Q2

REPORT INFORMATION
  Report Type: 
  Country: None (occurrence: None)
  Receive Date: 20100503
  Receipt Date: 20100421
  Transmission Date: 20101027
  Serious: Yes (Hospitalization, Other)
  Sender: FDA-Public Use
  Company Number: PHHY2009IT55509

PATIENT
  Sex: Female

DRUGS (2)
  1. VOLTAREN [Suspect]
     Indication: ARTHRALGIA
     Dosage: 75MG/3ML, ONE POSOLOGIC UNIT
     Route: 030
     Dates: start: 20091003, end: 20091016
  2. MUSCORIL [Concomitant]
     Indication: ARTHRALGIA
     Dosage: 4MG/2ML ONE POSOLOGICAL UNIT
     Route: 030
     Dates: start: 20091003, end: 20091016

REACTIONS (8)
  - ANAEMIA [None]
  - ARTHRALGIA [None]
  - CHEST PAIN [None]
  - COUGH [None]
  - INFLAMMATION [None]
  - MYELOCYTE PRESENT [None]
  - PANCYTOPENIA [None]
  - PERICARDITIS [None]
